FAERS Safety Report 20147887 (Version 1)
Quarter: 2021Q4

REPORT INFORMATION
  Report Type: Spontaneous
  Country: US (occurrence: US)
  Receive Date: 20211203
  Receipt Date: 20211203
  Transmission Date: 20220303
  Serious: No
  Sender: FDA-Public Use
  Company Number: US-drreddys-SPO/USA/21/0144369

PATIENT
  Age: 46 Year
  Sex: Male

DRUGS (1)
  1. BUPRENORPHINE\NALOXONE [Suspect]
     Active Substance: BUPRENORPHINE\NALOXONE
     Indication: Drug withdrawal syndrome
     Dosage: BUPRENORPHINE AND NALOXONE SUBLINGUAL FILM 8MG/2MG 1 STRIPS
     Route: 060
     Dates: start: 20211126

REACTIONS (2)
  - Poor quality product administered [Unknown]
  - Product quality issue [Unknown]
